FAERS Safety Report 9879401 (Version 1)
Quarter: 2014Q1

REPORT INFORMATION
  Report Type: Spontaneous
  Country: GB (occurrence: GB)
  Receive Date: 20140206
  Receipt Date: 20140206
  Transmission Date: 20141002
  Serious: Yes (Other)
  Sender: FDA-Public Use
  Company Number: GB-TEVA-458470ISR

PATIENT
  Age: 75 Year
  Sex: Female
  Weight: 82.56 kg

DRUGS (8)
  1. PRAVASTATIN [Suspect]
     Dates: start: 20131121
  2. DOXAZOSIN [Concomitant]
     Dates: start: 20131004, end: 20140115
  3. LOSARTAN [Concomitant]
     Dates: start: 20131004, end: 20140115
  4. SIMVASTATIN [Concomitant]
     Dates: start: 20131004, end: 20131202
  5. CIPROFLOXACIN [Concomitant]
     Dates: start: 20131011, end: 20131016
  6. ZOPICLONE [Concomitant]
     Dates: start: 20131101, end: 20131129
  7. MENTHOL [Concomitant]
     Dates: start: 20131204, end: 20131211
  8. COLCHICINE [Concomitant]
     Dates: start: 20131227, end: 20140103

REACTIONS (2)
  - Pruritus [Unknown]
  - Liver function test abnormal [Unknown]
